FAERS Safety Report 23223896 (Version 2)
Quarter: 2023Q4

REPORT INFORMATION
  Report Type: Spontaneous
  Country: FR (occurrence: FR)
  Receive Date: 20231124
  Receipt Date: 20231218
  Transmission Date: 20240110
  Serious: Yes (Other)
  Sender: FDA-Public Use
  Company Number: FR-AFSSAPS-AN2023001448

PATIENT
  Age: 30 Year
  Sex: Female
  Weight: 58 kg

DRUGS (22)
  1. AMLODIPINE [Suspect]
     Active Substance: AMLODIPINE BESYLATE
     Indication: Hypertension
     Dosage: 10 MILLIGRAM, ONCE A DAY
     Route: 048
     Dates: start: 20230629, end: 20230728
  2. BISOPROLOL [Suspect]
     Active Substance: BISOPROLOL\BISOPROLOL FUMARATE
     Indication: Product used for unknown indication
     Dosage: 2.5 MILLIGRAM, ONCE A DAY
     Route: 065
  3. CEFTRIAXONE [Suspect]
     Active Substance: CEFTRIAXONE\CEFTRIAXONE SODIUM
     Indication: Sepsis
     Dosage: 1000 MILLIGRAM (TOTAL)
     Route: 042
     Dates: start: 20230703, end: 20230703
  4. LANSOPRAZOLE [Suspect]
     Active Substance: LANSOPRAZOLE
     Indication: Product used for unknown indication
     Dosage: 15 MILLIGRAM, ONCE A DAY (1 TAB IN THE EVENING)
     Route: 065
  5. ONDANSETRON [Suspect]
     Active Substance: ONDANSETRON
     Indication: Prophylaxis
     Dosage: 3 DOSAGE FORM, ONCE A DAY
     Route: 042
     Dates: start: 20230629, end: 20230703
  6. OXYCODONE [Suspect]
     Active Substance: OXYCODONE
     Indication: Pain
     Dosage: 5 MILLIGRAM (TOTAL)
     Route: 048
     Dates: start: 20230704, end: 20230708
  7. ACETAMINOPHEN [Suspect]
     Active Substance: ACETAMINOPHEN
     Indication: Product used for unknown indication
     Dosage: 1 GRAM
     Route: 065
  8. PHLOROGLUCINOL [Suspect]
     Active Substance: PHLOROGLUCINOL
     Indication: Product used for unknown indication
     Dosage: 80 MILLIGRAM
     Route: 065
  9. AMIKACIN [Suspect]
     Active Substance: AMIKACIN
     Indication: Sepsis
     Dosage: 850 MILLIGRAM (TOTAL)
     Route: 042
     Dates: start: 20230703, end: 20230703
  10. AMPHOTERICIN B [Suspect]
     Active Substance: AMPHOTERICIN B
     Indication: Product used for unknown indication
     Dosage: UNK (1TSP.X3/D)
     Route: 065
  11. CELLCEPT [Suspect]
     Active Substance: MYCOPHENOLATE MOFETIL
     Indication: Product used for unknown indication
     Dosage: 1000 MILLIGRAM (1 TAB IN THE MORNING AND 1 TAB IN THE EVENING)
     Route: 065
  12. PREDNISONE [Suspect]
     Active Substance: PREDNISONE
     Indication: Prophylaxis
     Dosage: 55 MILLIGRAM, ONCE A DAY
     Route: 048
     Dates: start: 20230629
  13. LOVENOX [Suspect]
     Active Substance: ENOXAPARIN SODIUM
     Indication: Prophylaxis
     Dosage: 1 DOSAGE FORM, ONCE A DAY
     Route: 058
     Dates: start: 20230629, end: 20230714
  14. MOVICOL [Suspect]
     Active Substance: POLYETHYLENE GLYCOL 3350\POTASSIUM CHLORIDE\SODIUM BICARBONATE\SODIUM CHLORIDE
     Indication: Product used for unknown indication
     Dosage: UNK, AS NECESSARY (1 TO 2 SACHETS/DAY IF NECESSARY)
     Route: 065
  15. OXYBUTYNIN CHLORIDE [Suspect]
     Active Substance: OXYBUTYNIN CHLORIDE
     Indication: Pollakiuria
     Dosage: 5 MILLIGRAM (TOTAL)
     Route: 048
     Dates: start: 20230703, end: 20230704
  16. PIPERACILLIN [Suspect]
     Active Substance: PIPERACILLIN
     Indication: Sepsis
     Dosage: 16 GRAM, ONCE A DAY
     Route: 042
     Dates: start: 20230704, end: 20230706
  17. SIMULECT [Suspect]
     Active Substance: BASILIXIMAB
     Indication: Prophylaxis
     Dosage: 20 MILLIGRAM, ONCE A DAY
     Route: 042
     Dates: start: 20230629, end: 20230703
  18. PHLOROGLUCINOL [Suspect]
     Active Substance: PHLOROGLUCINOL
     Indication: Pain
     Dosage: 80 MILLIGRAM (TOTAL)
     Route: 048
     Dates: start: 20230703, end: 20230703
  19. TAZOBACTAM [Suspect]
     Active Substance: TAZOBACTAM
     Indication: Sepsis
     Dosage: 16 GRAM, ONCE A DAY
     Route: 042
     Dates: start: 20230704, end: 20230706
  20. PIPERACILLIN SODIUM\TAZOBACTAM SODIUM [Suspect]
     Active Substance: PIPERACILLIN SODIUM\TAZOBACTAM SODIUM
     Indication: Sepsis
     Dosage: 16 GRAM, ONCE A DAY
     Route: 065
     Dates: start: 20230704
  21. CALCIUM PHOSPHATE, DIBASIC, ANHYDROUS\MAGNESIUM GLYCEROPHOSPHATE\PHOSP [Suspect]
     Active Substance: CALCIUM PHOSPHATE, DIBASIC, ANHYDROUS\MAGNESIUM GLYCEROPHOSPHATE\PHOSPHORIC ACID\SODIUM PHOSPHATE, D
     Indication: Product used for unknown indication
     Dosage: 100 GTT DROPS, TWO TIMES A DAY (100GTTX2/D)
     Route: 065
  22. PROGRAF [Suspect]
     Active Substance: TACROLIMUS
     Indication: Product used for unknown indication
     Dosage: 3 MILLIGRAM (1 TAB IN THE MORNING)
     Route: 065

REACTIONS (1)
  - Hyperacusis [Recovering/Resolving]

NARRATIVE: CASE EVENT DATE: 20230701
